FAERS Safety Report 8141205-6 (Version None)
Quarter: 2012Q1

REPORT INFORMATION
  Report Type: 
  Country: None (occurrence: None)
  Receive Date: 20120216
  Receipt Date: 20120214
  Transmission Date: 20120608
  Serious: Yes (Death)
  Sender: FDA-Public Use
  Company Number: CA-B.I. PHARMACEUTICALS,INC./RIDGEFIELD-2012-CN-00294CN

PATIENT
  Age: 77 Year
  Sex: Female

DRUGS (15)
  1. MERREM [Concomitant]
     Route: 042
  2. ADALAT CC [Concomitant]
     Route: 065
  3. CEFTAZIDIME FOR INJECTION, USP [Concomitant]
     Route: 030
  4. PLAVIX [Concomitant]
     Route: 065
  5. APO K [Concomitant]
     Route: 065
  6. METOCLOPRAMIDE [Concomitant]
     Route: 065
  7. MIRTAZAPINE [Concomitant]
     Route: 065
  8. METOPROLOL TARTRATE [Concomitant]
     Route: 065
  9. VENTOLIN [Concomitant]
     Route: 065
  10. ZOFRAN [Concomitant]
     Route: 065
  11. PRADAXA [Suspect]
     Dosage: 220 MG
     Route: 048
  12. ASPIRIN [Concomitant]
     Route: 065
  13. ATACAND [Concomitant]
     Route: 065
  14. FUROSEMIDE [Concomitant]
     Route: 065
  15. LEVOFLOXACIN [Concomitant]
     Route: 065

REACTIONS (7)
  - ACUTE CORONARY SYNDROME [None]
  - THROMBOSIS [None]
  - PNEUMONIA [None]
  - CONDITION AGGRAVATED [None]
  - ENDOCARDITIS [None]
  - RENAL FAILURE ACUTE [None]
  - CARDIAC FAILURE CONGESTIVE [None]
